FAERS Safety Report 5160613-9 (Version None)
Quarter: 2006Q4

REPORT INFORMATION
  Report Type: 
  Country: None (occurrence: None)
  Receive Date: 20061121
  Receipt Date: 20061108
  Transmission Date: 20070319
  Serious: Yes (Other)
  Sender: FDA-Public Use
  Company Number: 2006112806

PATIENT
  Age: 43 Year
  Sex: Female
  Weight: 83.9154 kg

DRUGS (4)
  1. ZYRTEC [Suspect]
     Indication: HYPERSENSITIVITY
     Dosage: 10 MG (10 MG, 1 IN 1 D)
     Dates: start: 20020101
  2. BENADRYL [Suspect]
     Indication: HYPERSENSITIVITY
     Dosage: (25 MG, 1 IN 1 D)
     Dates: start: 20030101
  3. PROVIGIL [Concomitant]
  4. ADDERAL XR (AMFETAMINE ASPARTATE, AMFETAMINE SULFATE, DEXAMFETAMINE SA [Concomitant]

REACTIONS (7)
  - DRUG INEFFECTIVE [None]
  - EYE DISORDER [None]
  - MULTIPLE SCLEROSIS [None]
  - PHARMACEUTICAL PRODUCT COMPLAINT [None]
  - PRURITUS [None]
  - SWELLING [None]
  - URTICARIA [None]
